FAERS Safety Report 8589720-5 (Version None)
Quarter: 2012Q3

REPORT INFORMATION
  Report Type: 
  Country: None (occurrence: None)
  Receive Date: 20120813
  Receipt Date: 20120808
  Transmission Date: 20120928
  Serious: No
  Sender: FDA-Public Use
  Company Number: US-PFIZER INC-2012193769

PATIENT
  Age: 40 Year
  Sex: Male
  Weight: 82.54 kg

DRUGS (3)
  1. NEURONTIN [Concomitant]
     Indication: RESTLESS LEGS SYNDROME
     Dosage: UNK
  2. CHANTIX [Suspect]
     Indication: SMOKING CESSATION THERAPY
     Dosage: 0.5 MG, 1X/DAY
     Route: 048
     Dates: start: 20120805
  3. NEXIUM [Concomitant]
     Indication: DYSPEPSIA
     Dosage: UNK

REACTIONS (1)
  - ABNORMAL DREAMS [None]
